FAERS Safety Report 9493174 (Version 1)
Quarter: 2013Q3

REPORT INFORMATION
  Report Type: Spontaneous
  Country: US (occurrence: US)
  Receive Date: 20130902
  Receipt Date: 20130902
  Transmission Date: 20140515
  Serious: Yes (Other)
  Sender: FDA-Public Use
  Company Number: US-BRISTOL-MYERS SQUIBB COMPANY-19231505

PATIENT
  Age: 69 Year
  Sex: 0
  Weight: 79.36 kg

DRUGS (1)
  1. BYDUREON [Suspect]
     Indication: TYPE 2 DIABETES MELLITUS
     Route: 058

REACTIONS (2)
  - Syncope [Unknown]
  - Injection site swelling [Unknown]
